FAERS Safety Report 5880173-4 (Version None)
Quarter: 2008Q3

REPORT INFORMATION
  Report Type: 
  Country: None (occurrence: None)
  Receive Date: 20080912
  Receipt Date: 20080902
  Transmission Date: 20090109
  Serious: Yes (Hospitalization)
  Sender: FDA-Public Use
  Company Number: FR-PFIZER INC-2008074041

PATIENT
  Sex: Female

DRUGS (16)
  1. TRIFLUCAN [Suspect]
     Indication: ORAL FUNGAL INFECTION
     Route: 048
     Dates: start: 20080704, end: 20080715
  2. VERAPAMIL [Suspect]
     Indication: ATRIAL FIBRILLATION
     Route: 048
     Dates: start: 20080605, end: 20080716
  3. DIGOXIN [Suspect]
     Indication: ATRIAL FIBRILLATION
     Route: 048
     Dates: start: 20080605, end: 20080716
  4. AMLOD [Concomitant]
     Dates: start: 20080506
  5. ASPIRIN/PRAVASTATINE [Concomitant]
     Dates: start: 20080506
  6. TRINITRINE [Concomitant]
     Dates: start: 20080506
  7. LEVOTHYROX [Concomitant]
     Dates: start: 20080506
  8. CITALOPRAM HYDROBROMIDE [Concomitant]
     Dates: start: 20080506
  9. QVAR 40 [Concomitant]
     Dates: start: 20080506
  10. SPIRIVA [Concomitant]
     Dates: start: 20080506
  11. PLAVIX [Concomitant]
     Dates: start: 20080506, end: 20080701
  12. DIPROSONE [Concomitant]
     Dates: start: 20080506
  13. PRAZEPAM [Concomitant]
     Dates: start: 20080605
  14. INIPOMP [Concomitant]
     Dates: start: 20080605
  15. FORLAX [Concomitant]
     Dates: start: 20080605
  16. DAFALGAN [Concomitant]
     Dates: start: 20080605, end: 20080701

REACTIONS (3)
  - BRADYCARDIA [None]
  - ELECTROCARDIOGRAM QT PROLONGED [None]
  - VOMITING [None]
